FAERS Safety Report 10552330 (Version 3)
Quarter: 2015Q2

REPORT INFORMATION
  Report Type: Spontaneous
  Country: US (occurrence: US)
  Receive Date: 20141029
  Receipt Date: 20150525
  Transmission Date: 20150821
  Serious: Yes (Hospitalization)
  Sender: FDA-Public Use
  Company Number: US-JNJFOC-20141016062

PATIENT
  Age: 80 Year
  Sex: Female
  Weight: 50 kg

DRUGS (12)
  1. MELATONIN [Concomitant]
     Active Substance: MELATONIN
     Indication: SLEEP DISORDER
     Dosage: ONCE DAILY AT BEDTIME
     Route: 048
     Dates: start: 201410
  2. XARELTO [Suspect]
     Active Substance: RIVAROXABAN
     Indication: CEREBROVASCULAR ACCIDENT PROPHYLAXIS
     Route: 048
     Dates: start: 20140826, end: 2014
  3. VITAMIN D [Concomitant]
     Active Substance: CHOLECALCIFEROL
     Route: 048
  4. VITAMIN B12 [Concomitant]
     Active Substance: CYANOCOBALAMIN
     Route: 065
  5. XARELTO [Suspect]
     Active Substance: RIVAROXABAN
     Indication: ATRIAL FIBRILLATION
     Route: 048
     Dates: start: 2014, end: 20141008
  6. MORPHINE [Concomitant]
     Active Substance: MORPHINE
     Indication: PAIN
     Dosage: EVERY 4 HOURS AS NEEDED
     Route: 065
     Dates: start: 201410
  7. XARELTO [Suspect]
     Active Substance: RIVAROXABAN
     Indication: CEREBROVASCULAR ACCIDENT PROPHYLAXIS
     Route: 048
     Dates: start: 2014, end: 20141008
  8. AMIODARONE [Concomitant]
     Active Substance: AMIODARONE
     Route: 048
     Dates: end: 20141008
  9. ENOXAPARIN [Concomitant]
     Active Substance: ENOXAPARIN
     Route: 065
     Dates: start: 201410
  10. XARELTO [Suspect]
     Active Substance: RIVAROXABAN
     Indication: ATRIAL FIBRILLATION
     Route: 048
     Dates: start: 20140826, end: 2014
  11. METOCLOPRAMIDE. [Concomitant]
     Active Substance: METOCLOPRAMIDE
     Indication: NAUSEA
     Dosage: EVERY 6 HOURS AS NEEDED
     Route: 048
     Dates: start: 201410
  12. SOTALOL. [Concomitant]
     Active Substance: SOTALOL
     Route: 048
     Dates: start: 20141020

REACTIONS (8)
  - Fall [Recovered/Resolved]
  - Creatinine renal clearance increased [Recovered/Resolved]
  - Creatinine renal clearance decreased [Not Recovered/Not Resolved]
  - Haemoglobin decreased [Not Recovered/Not Resolved]
  - Urinary tract infection [Not Recovered/Not Resolved]
  - Hypokinesia [Recovered/Resolved]
  - Hepatic enzyme increased [Not Recovered/Not Resolved]
  - Dehydration [Recovered/Resolved]

NARRATIVE: CASE EVENT DATE: 2014
